FAERS Safety Report 16175312 (Version 2)
Quarter: 2022Q1

REPORT INFORMATION
  Report Type: Spontaneous
  Country: US (occurrence: US)
  Receive Date: 20190409
  Receipt Date: 20220310
  Transmission Date: 20220423
  Serious: No
  Sender: FDA-Public Use
  Company Number: US-OPTINOSE US, INC.-US-2018OPT000369

PATIENT
  Age: 44 Year
  Sex: Male

DRUGS (1)
  1. XHANCE [Suspect]
     Active Substance: FLUTICASONE PROPIONATE
     Indication: Nasal polyps
     Dosage: 186 MCG, BID (1 SPRAY EACH NOSTRIL BID)
     Route: 045
     Dates: start: 20181126

REACTIONS (5)
  - Diarrhoea [Recovered/Resolved]
  - Abdominal pain upper [Unknown]
  - Vomiting [Unknown]
  - Nausea [Unknown]
  - Abdominal discomfort [Recovered/Resolved]

NARRATIVE: CASE EVENT DATE: 20180101
